FAERS Safety Report 6400154-1 (Version None)
Quarter: 2009Q4

REPORT INFORMATION
  Report Type: 
  Country: None (occurrence: None)
  Receive Date: 20091014
  Receipt Date: 20091009
  Transmission Date: 20100525
  Serious: Yes (Hospitalization)
  Sender: FDA-Public Use
  Company Number: FR-ROCHE-655992

PATIENT
  Sex: Female
  Weight: 64 kg

DRUGS (2)
  1. INTERFERON ALFA [Suspect]
     Dosage: DOSE: 9 MU
     Route: 058
     Dates: start: 20090810
  2. BEVACIZUMAB [Suspect]
     Route: 042
     Dates: start: 20090810

REACTIONS (2)
  - GENERAL PHYSICAL HEALTH DETERIORATION [None]
  - HYPERKALAEMIA [None]
